FAERS Safety Report 8662162 (Version 3)
Quarter: 2019Q1

REPORT INFORMATION
  Report Type: Spontaneous
  Country: US (occurrence: US)
  Receive Date: 20120712
  Receipt Date: 20190320
  Transmission Date: 20190418
  Serious: Yes (Other)
  Sender: FDA-Public Use
  Company Number: US-ASTRAZENECA-2010SE12425

PATIENT
  Age: 67 Year
  Sex: Female

DRUGS (6)
  1. LISINOPRIL. [Suspect]
     Active Substance: LISINOPRIL
     Indication: MYOCARDIAL INFARCTION
     Route: 065
  2. MOBIC [Concomitant]
     Active Substance: MELOXICAM
  3. NEXIUM [Suspect]
     Active Substance: ESOMEPRAZOLE MAGNESIUM
     Indication: DYSPEPSIA
     Dosage: 40.0MG UNKNOWN
     Route: 048
  4. CELEBREX [Concomitant]
     Active Substance: CELECOXIB
  5. LISINOPRIL. [Suspect]
     Active Substance: LISINOPRIL
     Indication: MYOCARDIAL INFARCTION
     Dosage: BRAND
     Route: 048
  6. NEXIUM [Suspect]
     Active Substance: ESOMEPRAZOLE MAGNESIUM
     Indication: DYSPEPSIA
     Dosage: GENERIC NEXIUM UNKNOWN
     Route: 065

REACTIONS (17)
  - Product substitution issue [Unknown]
  - Drug hypersensitivity [Unknown]
  - Therapy cessation [Unknown]
  - Fibromyalgia [Unknown]
  - Nodule [Unknown]
  - Feeling abnormal [Unknown]
  - Croup infectious [Unknown]
  - Abnormal dreams [Unknown]
  - Myocardial infarction [Unknown]
  - Memory impairment [Unknown]
  - Skin cancer [Unknown]
  - Back injury [Unknown]
  - Hypoacusis [Unknown]
  - Dyspepsia [Unknown]
  - Breast cancer female [Unknown]
  - Circulatory collapse [Unknown]
  - Dry mouth [Unknown]
